FAERS Safety Report 9309860 (Version 2)
Quarter: 2013Q4

REPORT INFORMATION
  Report Type: Spontaneous
  Country: US (occurrence: US)
  Receive Date: 20130525
  Receipt Date: 20131126
  Transmission Date: 20140711
  Serious: No
  Sender: FDA-Public Use
  Company Number: US-BRISTOL-MYERS SQUIBB COMPANY-18752451

PATIENT
  Age: 68 Year
  Sex: Male
  Weight: 113.38 kg

DRUGS (15)
  1. BYDUREON [Suspect]
     Indication: TYPE 2 DIABETES MELLITUS
     Route: 058
     Dates: start: 201208
  2. BYETTA [Suspect]
     Indication: TYPE 2 DIABETES MELLITUS
     Route: 058
     Dates: end: 20130322
  3. LANTUS [Concomitant]
     Indication: TYPE 2 DIABETES MELLITUS
     Route: 058
  4. METFORMIN [Concomitant]
     Indication: TYPE 2 DIABETES MELLITUS
     Route: 048
  5. METOPROLOL [Concomitant]
     Indication: BLOOD PRESSURE
     Route: 048
  6. NORVASC [Concomitant]
     Indication: BLOOD PRESSURE
     Route: 048
  7. PREDNISONE [Concomitant]
     Route: 048
  8. PRAVACHOL [Concomitant]
     Route: 048
  9. ASPIRIN [Concomitant]
     Route: 048
  10. DOCUSATE SODIUM [Concomitant]
     Indication: CONSTIPATION
     Route: 048
  11. RANEXA [Concomitant]
     Route: 048
  12. GLUCOSAMINE [Concomitant]
     Route: 048
  13. VITAMIN D [Concomitant]
     Route: 048
  14. ENALAPRIL [Concomitant]
     Indication: BLOOD PRESSURE
  15. ZYTIGA [Concomitant]

REACTIONS (7)
  - Musculoskeletal stiffness [Not Recovered/Not Resolved]
  - Blood pressure decreased [Not Recovered/Not Resolved]
  - Dizziness [Not Recovered/Not Resolved]
  - Constipation [Not Recovered/Not Resolved]
  - Overdose [Recovered/Resolved]
  - Off label use [Not Recovered/Not Resolved]
  - Injection site nodule [Unknown]
